FAERS Safety Report 6297728-8 (Version None)
Quarter: 2009Q3

REPORT INFORMATION
  Report Type: 
  Country: None (occurrence: None)
  Receive Date: 20090805
  Receipt Date: 20090727
  Transmission Date: 20100115
  Serious: Yes (Hospitalization)
  Sender: FDA-Public Use
  Company Number: IT-AMGEN-UK344868

PATIENT
  Sex: Female

DRUGS (4)
  1. NEULASTA [Suspect]
     Indication: NEUTROPENIA
     Route: 058
     Dates: start: 20090320, end: 20090320
  2. CARBOPLATIN [Concomitant]
     Route: 042
     Dates: start: 20090108, end: 20090319
  3. GEMCITABINE [Concomitant]
     Route: 042
     Dates: start: 20090108
  4. TAMOXIFEN [Concomitant]

REACTIONS (1)
  - BACK PAIN [None]
